FAERS Safety Report 7132159-X (Version None)
Quarter: 2010Q4

REPORT INFORMATION
  Report Type: 
  Country: None (occurrence: None)
  Receive Date: 20101124
  Receipt Date: 20101124
  Transmission Date: 20110411
  Serious: No
  Sender: FDA-Public Use
  Company Number: None

PATIENT
  Age: 55 Year
  Sex: Female

DRUGS (2)
  1. ZICAM COLD REMEDY [Suspect]
     Indication: NASOPHARYNGITIS
     Dosage: 2 SPRAYS IN EACH NOSTRIL
     Route: 045
     Dates: start: 20100509, end: 20100514
  2. ZICAM COLD REMEDY [Suspect]
     Indication: NASOPHARYNGITIS
     Dosage: 2 SPRAYS IN EACH NOSTRIL
     Route: 045
     Dates: start: 20100514

REACTIONS (1)
  - ANOSMIA [None]
